FAERS Safety Report 14012708 (Version 1)
Quarter: 2017Q3

REPORT INFORMATION
  Report Type: Spontaneous
  Country: RU (occurrence: RU)
  Receive Date: 20170926
  Receipt Date: 20170926
  Transmission Date: 20171128
  Serious: Yes (Hospitalization)
  Sender: FDA-Public Use
  Company Number: RU-ASTRAZENECA-2017SE97451

PATIENT
  Age: 66 Year
  Sex: Female
  Weight: 78 kg

DRUGS (11)
  1. CARDIOMAGNYL [Concomitant]
     Active Substance: ASPIRIN\MAGNESIUM HYDROXIDE
  2. ENALAPRIL [Concomitant]
     Active Substance: ENALAPRIL
  3. INOSINE [Concomitant]
     Active Substance: INOSINE
  4. ATORVASTATIN [Concomitant]
     Active Substance: ATORVASTATIN
  5. BISOPROLOL [Concomitant]
     Active Substance: BISOPROLOL
  6. NOLPAZA [Concomitant]
     Active Substance: PANTOPRAZOLE SODIUM
  7. MEXIDOL [Concomitant]
  8. SIOFOR [Concomitant]
     Active Substance: METFORMIN HYDROCHLORIDE
  9. VEROSPIRON [Concomitant]
     Active Substance: SPIRONOLACTONE
  10. BRILINTA [Suspect]
     Active Substance: TICAGRELOR
     Indication: MYOCARDIAL INFARCTION
     Route: 048
     Dates: start: 20160921
  11. AMLODIPIN [Concomitant]
     Active Substance: AMLODIPINE BESYLATE

REACTIONS (5)
  - Pyrexia [Unknown]
  - Contusion [Recovered/Resolved]
  - Respiration abnormal [Recovered/Resolved]
  - Bradycardia [Recovered/Resolved]
  - Dyspnoea [Not Recovered/Not Resolved]

NARRATIVE: CASE EVENT DATE: 20170703
